FAERS Safety Report 9460002 (Version 1)
Quarter: 2013Q3

REPORT INFORMATION
  Report Type: Spontaneous
  Country: US (occurrence: None)
  Receive Date: 20130813
  Receipt Date: 20130813
  Transmission Date: 20140515
  Serious: No
  Sender: FDA-Public Use
  Company Number: None

PATIENT
  Age: 53 Year
  Sex: Male
  Weight: 104.33 kg

DRUGS (9)
  1. NALTREXONE [Suspect]
     Indication: ALCOHOLISM
     Route: 048
     Dates: start: 20130717, end: 20130722
  2. ATENOLOL [Concomitant]
  3. VPAP SLEEP MACHINE [Concomitant]
  4. VITAMIN C [Concomitant]
  5. VITAMIN D [Concomitant]
  6. VITAMIN B [Concomitant]
  7. CALCIUM [Concomitant]
  8. MAGNESIUM [Concomitant]
  9. LOW DOSE ASPRIN [Concomitant]

REACTIONS (5)
  - Insomnia [None]
  - Vision blurred [None]
  - Confusional state [None]
  - Dizziness [None]
  - Disorientation [None]
